FAERS Safety Report 4825147-7 (Version None)
Quarter: 2005Q4

REPORT INFORMATION
  Report Type: 
  Country: None (occurrence: None)
  Receive Date: 20051109
  Receipt Date: 20051109
  Transmission Date: 20060501
  Serious: Yes (Death)
  Sender: FDA-Public Use
  Company Number: None

PATIENT
  Age: 52 Year
  Sex: Female
  Weight: 68.0396 kg

DRUGS (1)
  1. FENTANYL [Suspect]
     Indication: BACK PAIN
     Dosage: 2 TOPICAL Q2 D
     Route: 061

REACTIONS (4)
  - BURNS THIRD DEGREE [None]
  - DRUG EFFECT INCREASED [None]
  - OVERDOSE [None]
  - SEDATION [None]
